FAERS Safety Report 15848095 (Version 1)
Quarter: 2019Q1

REPORT INFORMATION
  Report Type: Report from Study
  Country: NL (occurrence: NL)
  Receive Date: 20190121
  Receipt Date: 20190121
  Transmission Date: 20190417
  Serious: Yes (Hospitalization)
  Sender: FDA-Public Use
  Company Number: -ASTRAZENECA-2019SE12324

PATIENT
  Age: 2 Month
  Sex: Male
  Weight: 3.2 kg

DRUGS (2)
  1. SYNAGIS [Suspect]
     Active Substance: PALIVIZUMAB
     Indication: ANTIVIRAL PROPHYLAXIS
     Route: 030
     Dates: start: 20190114, end: 20190114
  2. FERROFUMARATE [Concomitant]
     Indication: BLOOD IRON ABNORMAL
     Dosage: 20.0MG UNKNOWN
     Route: 065

REACTIONS (1)
  - Heart rate increased [Recovered/Resolved]

NARRATIVE: CASE EVENT DATE: 20190114
